FAERS Safety Report 6456662-0 (Version None)
Quarter: 2009Q4

REPORT INFORMATION
  Report Type: 
  Country: None (occurrence: None)
  Receive Date: 20091125
  Receipt Date: 20081020
  Transmission Date: 20100525
  Serious: No
  Sender: FDA-Public Use
  Company Number: A0752806A

PATIENT
  Age: 61 Year
  Sex: Female

DRUGS (9)
  1. LANOXIN [Suspect]
     Dosage: .5TAB PER DAY
     Route: 048
     Dates: start: 20080710
  2. LOPRESSOR [Concomitant]
  3. ALDACTONE [Concomitant]
  4. PREMARIN [Concomitant]
  5. PROVERA [Concomitant]
  6. QVAR 40 [Concomitant]
  7. ATIVAN [Concomitant]
  8. ALBUTEROL [Concomitant]
  9. ASPIRIN [Concomitant]

REACTIONS (9)
  - ASTHENIA [None]
  - CARDIAC DISORDER [None]
  - CHEST DISCOMFORT [None]
  - DIZZINESS [None]
  - DYSPNOEA [None]
  - DYSPNOEA AT REST [None]
  - HEADACHE [None]
  - MUSCULAR WEAKNESS [None]
  - SPEECH DISORDER [None]
